FAERS Safety Report 6212666-4 (Version None)
Quarter: 2009Q2

REPORT INFORMATION
  Report Type: 
  Country: None (occurrence: None)
  Receive Date: 20090603
  Receipt Date: 20090525
  Transmission Date: 20091009
  Serious: Yes (Death, Hospitalization)
  Sender: FDA-Public Use
  Company Number: CN-ROCHE-634731

PATIENT
  Age: 30 Year
  Sex: Male

DRUGS (8)
  1. ALL-TRANS-RETINOIC ACID [Suspect]
     Route: 065
  2. ALL-TRANS-RETINOIC ACID [Suspect]
     Dosage: MAINTENANCE TREATMENT
     Route: 065
  3. MITOXANTRONE [Suspect]
     Route: 042
  4. MITOXANTRONE [Suspect]
     Dosage: X 3
     Route: 042
  5. CYTARABINE [Suspect]
     Dosage: ON DAYS 4, 5, AND 6. DRUG REPORTED AS ARA-C
     Route: 065
  6. CYTARABINE [Suspect]
     Dosage: X 7
     Route: 065
  7. ACLARUBICIN [Suspect]
     Dosage: DRUG REPORTED AS ACLA X 7
     Route: 065
  8. DAUNORUBICIN HCL [Suspect]
     Dosage: X 3
     Route: 065

REACTIONS (2)
  - ACUTE MYELOID LEUKAEMIA [None]
  - THROMBOCYTOPENIA [None]
